FAERS Safety Report 22319665 (Version 1)
Quarter: 2023Q2

REPORT INFORMATION
  Report Type: Spontaneous
  Country: US (occurrence: None)
  Receive Date: 20230512
  Receipt Date: 20230512
  Transmission Date: 20230722
  Serious: Yes (Other)
  Sender: FDA-Public Use
  Company Number: None

PATIENT
  Age: 53 Year
  Sex: Male

DRUGS (24)
  1. ADEMPAS [Suspect]
     Active Substance: RIOCIGUAT
     Indication: Pulmonary hypertension
     Dosage: 2.50MG TID ORAL??EXPIRATION DAE: 30-NOV-2023  - 30-JUN-2024?
     Route: 048
     Dates: start: 20210702
  2. ADEMPAS [Suspect]
     Active Substance: RIOCIGUAT
  3. OPSUMIT [Concomitant]
     Active Substance: MACITENTAN
  4. MORPHINE [Concomitant]
     Active Substance: MORPHINE
  5. DULOXETINE [Concomitant]
     Active Substance: DULOXETINE
  6. ENOXAPARIN [Concomitant]
     Active Substance: ENOXAPARIN
  7. WARFARIN [Concomitant]
     Active Substance: WARFARIN
  8. CIPRO [Concomitant]
     Active Substance: CIPROFLOXACIN HYDROCHLORIDE
  9. OXYCODONE [Concomitant]
     Active Substance: OXYCODONE
  10. DIPHENDRAMINE [Concomitant]
  11. GABAPENTIN [Concomitant]
     Active Substance: GABAPENTIN
  12. LAMOTRIGINE [Concomitant]
     Active Substance: LAMOTRIGINE
  13. TORSEMIDE [Concomitant]
     Active Substance: TORSEMIDE
  14. SPIRONOLACTONE [Concomitant]
     Active Substance: SPIRONOLACTONE
  15. NARCAN [Concomitant]
     Active Substance: NALOXONE HYDROCHLORIDE
  16. AMOXICILLIN [Concomitant]
     Active Substance: AMOXICILLIN
  17. TYLENOL [Concomitant]
     Active Substance: ACETAMINOPHEN
  18. LITHIUM CARBONATE [Concomitant]
     Active Substance: LITHIUM CARBONATE
  19. LIDOCAINE TOP CREAM [Concomitant]
  20. NYSTATIN TOP POWDER [Concomitant]
  21. PREDNISONE [Concomitant]
     Active Substance: PREDNISONE
  22. MELATONIN [Concomitant]
     Active Substance: MELATONIN
  23. RISPERIDONE [Concomitant]
     Active Substance: RISPERIDONE
  24. VITAMINS [Concomitant]
     Active Substance: VITAMINS

REACTIONS (2)
  - Tremor [None]
  - Speech disorder [None]

NARRATIVE: CASE EVENT DATE: 20230421
